FAERS Safety Report 16769633 (Version 1)
Quarter: 2019Q3

REPORT INFORMATION
  Report Type: Spontaneous
  Country: CN (occurrence: CN)
  Receive Date: 20190903
  Receipt Date: 20190903
  Transmission Date: 20191005
  Serious: Yes (Disabling, Other)
  Sender: FDA-Public Use
  Company Number: CN-BAXTER-2019BAX016931

PATIENT
  Age: 61 Year
  Sex: Female
  Weight: 49.5 kg

DRUGS (56)
  1. ENDOXAN [Suspect]
     Active Substance: CYCLOPHOSPHAMIDE
     Indication: DIFFUSE LARGE B-CELL LYMPHOMA
     Dosage: CYCLOPHOSPHAMIDE (1.1 G) + NS (100 ML)
     Route: 041
     Dates: start: 20190110, end: 20190110
  2. ENDOXAN [Suspect]
     Active Substance: CYCLOPHOSPHAMIDE
     Dosage: DOSE RE-INTRODUCED; CYCLOPHOSPHAMIDE + NS
     Route: 041
  3. ETOPOSIDE. [Suspect]
     Active Substance: ETOPOSIDE
     Dosage: DOSE RE-INTRODUCED; ETOPOSIDE + SODIUM CHLORIDE
     Route: 041
  4. PHARMORUBICIN RD [Suspect]
     Active Substance: EPIRUBICIN
     Dosage: DOSE RE-INTRODUCED; EPIRUBICIN HYDROCHLORIDE + SODIUM CHLORIDE
     Route: 041
  5. CYTARABINE HYDROCHLORIDE [Suspect]
     Active Substance: CYTARABINE HYDROCHLORIDE
     Dosage: DOSE RE-INTRODUCED
     Route: 037
  6. SODIUM CHLORIDE. [Suspect]
     Active Substance: SODIUM CHLORIDE
     Dosage: DOSE RE-INTRODUCED; SOLVENT FOR EPIRUBICIN HYDROCHLORIDE
     Route: 041
  7. PHARMORUBICIN RD [Suspect]
     Active Substance: EPIRUBICIN
     Dosage: DOSE REDUCED
     Route: 041
  8. GAINUO [Suspect]
     Active Substance: VINORELBINE TARTRATE
     Dosage: VINORELBINE TARTRATE (40 MG) + SODIUM CHLORIDE (NS) 100ML
     Route: 041
     Dates: start: 20190211, end: 20190211
  9. GAINUO [Suspect]
     Active Substance: VINORELBINE TARTRATE
     Dosage: DOSE RE-INTRODUCED; VINORELBINE TARTRATE 40MG +SODIUM CHLORIDE (NS) 100ML
     Route: 041
  10. DEXAMETHASONE SODIUM PHOSPHATE. [Suspect]
     Active Substance: DEXAMETHASONE SODIUM PHOSPHATE
     Indication: PROPHYLAXIS
     Dosage: CYTARABINE HYDROCHLORIDE (50 MG) + DEXAMETHASONE SODIUM PHOSPHATE (5 MG) + SODIUM CHLORIDE (NS) 2ML
     Route: 037
     Dates: start: 20190525, end: 20190525
  11. SODIUM CHLORIDE. [Suspect]
     Active Substance: SODIUM CHLORIDE
     Dosage: ETOPOSIDE 0.1G+SODIUM CHLORIDE 500ML
     Route: 041
     Dates: start: 20190111, end: 20190113
  12. SODIUM CHLORIDE. [Suspect]
     Active Substance: SODIUM CHLORIDE
     Dosage: ETOPOSIDE 0.1G+SODIUM CHLORIDE 500ML
     Route: 041
     Dates: start: 20190314, end: 20190316
  13. SODIUM CHLORIDE. [Suspect]
     Active Substance: SODIUM CHLORIDE
     Dosage: CYCLOPHOSPHAMIDE 1.1G+ SODIUM CHLORIDE (NS) 100ML
     Route: 041
     Dates: start: 20190525, end: 20190525
  14. SODIUM CHLORIDE. [Suspect]
     Active Substance: SODIUM CHLORIDE
     Dosage: ETOPOSIDE 0.1G + SODIUM CHLORIDE 500ML
     Route: 041
     Dates: start: 20190525, end: 20190527
  15. SODIUM CHLORIDE. [Suspect]
     Active Substance: SODIUM CHLORIDE
     Dosage: DOSE RE-INTRODUCED; SOLVENT FOR VINORELBINE TARTRATE
     Route: 041
  16. SODIUM CHLORIDE. [Suspect]
     Active Substance: SODIUM CHLORIDE
     Dosage: DOSE RE-INTRODUCED; SOLVENT FOR RITUXIMAB
     Route: 041
  17. ETOPOSIDE. [Suspect]
     Active Substance: ETOPOSIDE
     Dosage: ETOPOSIDE (0.1G) + SODIUM CHLORIDE (500 ML)
     Route: 041
     Dates: start: 20190314, end: 20190316
  18. ETOPOSIDE. [Suspect]
     Active Substance: ETOPOSIDE
     Dosage: ETOPOSIDE (0.1G) + SODIUM CHLORIDE (500 ML)
     Route: 041
     Dates: start: 20190525, end: 20190527
  19. RITUXIMAB. [Suspect]
     Active Substance: RITUXIMAB
     Dosage: RITUXIMAB (570 MG) + SODIUM CHLORIDE (NS) (600 ML)
     Route: 041
     Dates: start: 20190524, end: 20190524
  20. RITUXIMAB. [Suspect]
     Active Substance: RITUXIMAB
     Dosage: DOSE RE-INTRODUCED; RITUXIMAB  + SODIUM CHLORIDE (NS)
     Route: 041
  21. DEXAMETHASONE SODIUM PHOSPHATE. [Suspect]
     Active Substance: DEXAMETHASONE SODIUM PHOSPHATE
     Dosage: DOSE RE-INTRODUCED
     Route: 037
  22. SODIUM CHLORIDE. [Suspect]
     Active Substance: SODIUM CHLORIDE
     Dosage: CYCLOPHOSPHAMIDE  1.1G+ SODIUM CHLORIDE (NS)100ML
     Route: 041
     Dates: start: 20190110, end: 20190110
  23. SODIUM CHLORIDE. [Suspect]
     Active Substance: SODIUM CHLORIDE
     Dosage: EPIRUBICIN HYDROCHLORIDE 110MG + SODIUM CHLORIDE 100ML
     Route: 041
     Dates: start: 20190111, end: 20190111
  24. SODIUM CHLORIDE. [Suspect]
     Active Substance: SODIUM CHLORIDE
     Dosage: RITUXIMAB INJECTION 570MG + SODIUM CHLORIDE (NS) 100 ML
     Route: 041
     Dates: start: 20190524, end: 20190524
  25. SODIUM CHLORIDE. [Suspect]
     Active Substance: SODIUM CHLORIDE
     Dosage: EPIRUBICIN HYDROCHLORIDE 110MG+ SODIUM CHLORIDE (NS) 100ML
     Route: 041
     Dates: start: 20190525, end: 20190525
  26. ENDOXAN [Suspect]
     Active Substance: CYCLOPHOSPHAMIDE
     Dosage: CYCLOPHOSPHAMIDE (1.1 G) + NS (100 ML)
     Route: 041
     Dates: start: 20190211, end: 20190211
  27. PHARMORUBICIN RD [Suspect]
     Active Substance: EPIRUBICIN
     Dosage: EPIRUBICIN HYDROCHLORIDE (110 MG) + SODIUM CHLORIDE (100ML)
     Route: 041
     Dates: start: 20190525, end: 20190525
  28. GAINUO [Suspect]
     Active Substance: VINORELBINE TARTRATE
     Dosage: VINORELBINE TARTRATE (40 MG) + SODIUM CHLORIDE (NS) 100ML
     Route: 041
     Dates: start: 20190315, end: 20190315
  29. CYTARABINE HYDROCHLORIDE [Suspect]
     Active Substance: CYTARABINE HYDROCHLORIDE
     Indication: PROPHYLAXIS
     Dosage: CYTARABINE HYDROCHLORIDE (50 MG) + DEXAMETHASONE SODIUM PHOSPHATE (5 MG) + SODIUM CHLORIDE (NS) 2ML
     Route: 037
     Dates: start: 20190523, end: 20190523
  30. SODIUM CHLORIDE. [Suspect]
     Active Substance: SODIUM CHLORIDE
     Dosage: VINORELBINE TARTRATE 40MG +SODIUM CHLORIDE (NS) 100ML
     Route: 041
     Dates: start: 20190315, end: 20190315
  31. SODIUM CHLORIDE. [Suspect]
     Active Substance: SODIUM CHLORIDE
     Dosage: EPIRUBICIN HYDROCHLORIDE 110MG + SODIUM CHLORIDE 100ML
     Route: 041
     Dates: start: 20190315, end: 20190315
  32. ETOPOSIDE. [Suspect]
     Active Substance: ETOPOSIDE
     Indication: DIFFUSE LARGE B-CELL LYMPHOMA
     Dosage: ETOPOSIDE (0.1G) + SODIUM CHLORIDE (500 ML)
     Route: 041
     Dates: start: 20190111, end: 20190113
  33. RITUXIMAB. [Suspect]
     Active Substance: RITUXIMAB
     Indication: DIFFUSE LARGE B-CELL LYMPHOMA
     Dosage: RITUXIMAB (600MG) + SODIUM CHLORIDE (NS) (600 ML)
     Route: 041
     Dates: start: 20190319, end: 20190319
  34. SODIUM CHLORIDE. [Suspect]
     Active Substance: SODIUM CHLORIDE
     Dosage: DOSE RE-INTRODUCED, SOLVENT FOR ETOPOSIDE
     Route: 041
  35. ENDOXAN [Suspect]
     Active Substance: CYCLOPHOSPHAMIDE
     Dosage: CYCLOPHOSPHAMIDE (1.1 G) + NS (100 ML)
     Route: 041
     Dates: start: 20190315, end: 20190315
  36. ENDOXAN [Suspect]
     Active Substance: CYCLOPHOSPHAMIDE
     Dosage: CYCLOPHOSPHAMIDE (1.1 G) + NS (100 ML)
     Route: 041
     Dates: start: 20190525, end: 20190525
  37. ENDOXAN [Suspect]
     Active Substance: CYCLOPHOSPHAMIDE
     Dosage: DOSE REDUCED
     Route: 041
  38. ETOPOSIDE. [Suspect]
     Active Substance: ETOPOSIDE
     Dosage: ETOPOSIDE (0.1G) + SODIUM CHLORIDE (500 ML)
     Route: 041
     Dates: start: 20190211, end: 20190213
  39. PHARMORUBICIN RD [Suspect]
     Active Substance: EPIRUBICIN
     Indication: DIFFUSE LARGE B-CELL LYMPHOMA
     Dosage: EPIRUBICIN HYDROCHLORIDE (110 MG) + SODIUM CHLORIDE (100ML)
     Route: 041
     Dates: start: 20190111, end: 20190111
  40. GAINUO [Suspect]
     Active Substance: VINORELBINE TARTRATE
     Dosage: DOSE REDUCED
     Route: 041
  41. SODIUM CHLORIDE. [Suspect]
     Active Substance: SODIUM CHLORIDE
     Indication: MEDICATION DILUTION
     Dosage: CYTARABINE HYDROCHLORIDE FOR 50MG+ DEXAMETHASONE SODIUM PHOSPHATE 5MG+ SODIUM CHLORIDE (NS) 2ML
     Route: 037
     Dates: start: 20190523, end: 20190523
  42. SODIUM CHLORIDE. [Suspect]
     Active Substance: SODIUM CHLORIDE
     Dosage: CYCLOPHOSPHAMIDE 1.1G+ NORMAL SALINE (NS) 100ML
     Route: 041
     Dates: start: 20190211, end: 20190211
  43. SODIUM CHLORIDE. [Suspect]
     Active Substance: SODIUM CHLORIDE
     Dosage: CYCLOPHOSPHAMIDE 1.1G +SODIUM CHLORIDE (NS) 100ML
     Route: 041
     Dates: start: 20190315, end: 20190315
  44. PHARMORUBICIN RD [Suspect]
     Active Substance: EPIRUBICIN
     Dosage: EPIRUBICIN HYDROCHLORIDE (110 MG) + SODIUM CHLORIDE (100ML)
     Route: 041
     Dates: start: 20190211, end: 20190211
  45. PHARMORUBICIN RD [Suspect]
     Active Substance: EPIRUBICIN
     Dosage: EPIRUBICIN HYDROCHLORIDE (110 MG) + SODIUM CHLORIDE (100ML)
     Route: 041
     Dates: start: 20190315, end: 20190315
  46. SODIUM CHLORIDE. [Suspect]
     Active Substance: SODIUM CHLORIDE
     Dosage: DOSE RE-INTRODUCED
     Route: 037
  47. SODIUM CHLORIDE. [Suspect]
     Active Substance: SODIUM CHLORIDE
     Dosage: VINORELBINE TARTRATE 40MG + NORMAL SALINE (NS) 100ML
     Route: 041
     Dates: start: 20190211, end: 20190211
  48. SODIUM CHLORIDE. [Suspect]
     Active Substance: SODIUM CHLORIDE
     Dosage: RITUXIMAB INJECTION 570MG + SODIUM CHLORIDE NS 500ML
     Route: 041
     Dates: start: 20190524, end: 20190524
  49. SODIUM CHLORIDE. [Suspect]
     Active Substance: SODIUM CHLORIDE
     Dosage: DOSE RE-INTRODUCED; SOLVENT FOR CYCLOPHOSPHAMIDE
     Route: 041
  50. GAINUO [Suspect]
     Active Substance: VINORELBINE TARTRATE
     Indication: DIFFUSE LARGE B-CELL LYMPHOMA
     Dosage: VINORELBINE TARTRATE (40 MG) + SODIUM CHLORIDE (NS) 100ML
     Route: 041
     Dates: start: 20190110, end: 20190110
  51. GAINUO [Suspect]
     Active Substance: VINORELBINE TARTRATE
     Dosage: VINORELBINE TARTRATE (40 MG) + SODIUM CHLORIDE (NS) 100ML
     Route: 041
     Dates: start: 20190525, end: 20190525
  52. SODIUM CHLORIDE. [Suspect]
     Active Substance: SODIUM CHLORIDE
     Indication: MEDICATION DILUTION
     Dosage: VINORELBINE TARTRATE 40MG + SODIUM CHLORIDE(NS) 100ML
     Route: 041
     Dates: start: 20190110, end: 20190110
  53. SODIUM CHLORIDE. [Suspect]
     Active Substance: SODIUM CHLORIDE
     Dosage: EPIRUBICIN HYDROCHLORIDE  110MG + SODIUM CHLORIDE 100ML
     Route: 041
     Dates: start: 20190211, end: 20190211
  54. SODIUM CHLORIDE. [Suspect]
     Active Substance: SODIUM CHLORIDE
     Dosage: ETOPOSIDE 0.1G+SODIUM CHLORIDE 500ML
     Route: 041
     Dates: start: 20190211, end: 20190213
  55. SODIUM CHLORIDE. [Suspect]
     Active Substance: SODIUM CHLORIDE
     Dosage: RITUXIMAB INJECTION 600MG + SODIUM CHLORIDE 600ML
     Route: 041
     Dates: start: 20190319, end: 20190319
  56. SODIUM CHLORIDE. [Suspect]
     Active Substance: SODIUM CHLORIDE
     Dosage: VINORELBINE TARTRATE 40MG + SODIUM CHLORIDE (NS) 100ML
     Route: 041
     Dates: start: 20190525, end: 20190525

REACTIONS (3)
  - Peripheral nerve injury [Recovering/Resolving]
  - Bone marrow failure [Unknown]
  - Bone marrow failure [Recovered/Resolved]

NARRATIVE: CASE EVENT DATE: 20190705
